FAERS Safety Report 8800896 (Version 1)
Quarter: 2012Q4

REPORT INFORMATION
  Report Type: 
  Country: AU (occurrence: AU)
  Receive Date: 20120921
  Receipt Date: 20120921
  Transmission Date: 20130627
  Serious: Yes (Other)
  Sender: FDA-Public Use
  Company Number: AU-PERRIGO-12AU007934

PATIENT
  Age: 24 Year
  Sex: Female

DRUGS (2)
  1. BETAMETHASONE DIPROPIONATE [Suspect]
     Indication: PRODUCT USED FOR UNKNOWN INDICATION
     Dosage: UNK, UNK
     Route: 061
  2. CLOBETASOL PROPIONATE [Suspect]
     Indication: PRODUCT USED FOR UNKNOWN INDICATION
     Dosage: UNK, UNK
     Route: 061

REACTIONS (12)
  - Cushingoid [Unknown]
  - Central obesity [Unknown]
  - Skin fragility [Unknown]
  - Fatigue [Unknown]
  - Abdominal distension [Unknown]
  - Skin striae [Unknown]
  - Blood cortisol decreased [Unknown]
  - Glycosylated haemoglobin increased [Unknown]
  - Blood glucose increased [Unknown]
  - Dizziness [Unknown]
  - Face oedema [Unknown]
  - Skin depigmentation [Unknown]
